FAERS Safety Report 9302713 (Version 2)
Quarter: 2013Q3

REPORT INFORMATION
  Report Type: Spontaneous
  Country: BR (occurrence: BR)
  Receive Date: 20130522
  Receipt Date: 20130726
  Transmission Date: 20140515
  Serious: Yes (Other)
  Sender: FDA-Public Use
  Company Number: PHHY2013BR049904

PATIENT
  Age: 9 Year
  Sex: Male

DRUGS (3)
  1. RITALINA [Suspect]
     Indication: ATTENTION DEFICIT/HYPERACTIVITY DISORDER
     Dosage: 1 DF, BID (1 TABLET IN THE MORNING AND AT NIGHT)
  2. RITALINA [Suspect]
     Dosage: 1 DF, BID (1 TABLET IN THE MORNING AND AT NIGHT)
  3. TOFRANIL [Suspect]
     Indication: ABNORMAL BEHAVIOUR
     Dosage: 1 DF, BID (1 TABLET IN THE MORNING AND AT NIGHT)
     Route: 048

REACTIONS (6)
  - Bundle branch block right [Recovered/Resolved]
  - Memory impairment [Recovered/Resolved]
  - Haematoma [Recovered/Resolved]
  - Decreased appetite [Recovered/Resolved]
  - Chest pain [Not Recovered/Not Resolved]
  - Disturbance in attention [Recovered/Resolved]
